FAERS Safety Report 6978353-X (Version None)
Quarter: 2010Q3

REPORT INFORMATION
  Report Type: 
  Country: None (occurrence: None)
  Receive Date: 20100913
  Receipt Date: 20100828
  Transmission Date: 20110219
  Serious: Yes (Other)
  Sender: FDA-Public Use
  Company Number: PHHY2010US57603

PATIENT
  Sex: Female

DRUGS (1)
  1. AREDIA [Suspect]
     Dosage: UNK

REACTIONS (5)
  - BLOOD CALCIUM INCREASED [None]
  - BREAST CANCER METASTATIC [None]
  - MALIGNANT NEOPLASM PROGRESSION [None]
  - METASTASES TO BONE [None]
  - PAIN [None]
